FAERS Safety Report 21908754 (Version 1)
Quarter: 2023Q1

REPORT INFORMATION
  Report Type: Spontaneous
  Country: US (occurrence: US)
  Receive Date: 20230125
  Receipt Date: 20230125
  Transmission Date: 20230418
  Serious: Yes (Other)
  Sender: FDA-Public Use
  Company Number: US-JUBILANT CADISTA PHARMACEUTICALS-2023JUB00031

PATIENT
  Age: 14 Year
  Sex: Female

DRUGS (15)
  1. CLOMIPRAMINE HYDROCHLORIDE [Suspect]
     Active Substance: CLOMIPRAMINE HYDROCHLORIDE
     Indication: Obsessive-compulsive disorder
     Dosage: 75 MG, 1X/DAY, AT BED TIME
  2. CLOMIPRAMINE HYDROCHLORIDE [Suspect]
     Active Substance: CLOMIPRAMINE HYDROCHLORIDE
     Dosage: 25 MG, 1X/DAY, AT BED TIME
  3. CLOZAPINE [Suspect]
     Active Substance: CLOZAPINE
     Indication: Psychotic disorder
     Dosage: OFF LABEL USE; 25 MG
  4. CLOZAPINE [Suspect]
     Active Substance: CLOZAPINE
     Dosage: 75 UNK; 25 MG INCREMENTS TO 100 MG
  5. CLOZAPINE [Suspect]
     Active Substance: CLOZAPINE
     Dosage: 100 UNK; 25 MG INCREMENTS TO 100 MG
  6. CLOZAPINE [Suspect]
     Active Substance: CLOZAPINE
     Dosage: 50 UNK; 25 MG INCREMENTS TO 100 MG
  7. LORAZEPAM [Concomitant]
     Active Substance: LORAZEPAM
     Route: 030
  8. LITHIUM [Concomitant]
     Active Substance: LITHIUM
     Dosage: 900 MG, 1X/DAY; EXTENDED RELEASE - AT BED TIME
  9. LITHIUM [Concomitant]
     Active Substance: LITHIUM
     Dosage: 900 MG, 1X/DAY; EXTENDED RELEASE - AT BED TIME
  10. LITHIUM [Concomitant]
     Active Substance: LITHIUM
     Dosage: 450 MG, 1X/DAY; EXTENDED RELEASE - AT BED TIME
  11. LITHIUM [Concomitant]
     Active Substance: LITHIUM
     Dosage: 450 MG, 1X/DAY; EXTENDED RELEASE - AT BED TIME
  12. HYDROXYZINE [Concomitant]
     Active Substance: HYDROXYZINE HYDROCHLORIDE
  13. CHLORPROMAZINE [Concomitant]
     Active Substance: CHLORPROMAZINE
     Dosage: UNK
     Route: 048
  14. CHLORPROMAZINE [Concomitant]
     Active Substance: CHLORPROMAZINE
     Dosage: UNK
     Route: 030
  15. METFORMIN [Concomitant]
     Active Substance: METFORMIN HYDROCHLORIDE
     Dosage: 500 MG, EVERY 12 HOUR

REACTIONS (4)
  - Gastrointestinal hypomotility [Recovered/Resolved]
  - Off label use [Not Recovered/Not Resolved]
  - Constipation [Recovered/Resolved]
  - Somnolence [Unknown]
